FAERS Safety Report 22166025 (Version 1)
Quarter: 2023Q1

REPORT INFORMATION
  Report Type: Spontaneous
  Country: US (occurrence: None)
  Receive Date: 20230331
  Receipt Date: 20230331
  Transmission Date: 20230417
  Serious: No
  Sender: FDA-Public Use
  Company Number: None

PATIENT
  Sex: Female

DRUGS (2)
  1. DALFAMPRIDINE [Suspect]
     Active Substance: DALFAMPRIDINE
     Dosage: FREQUENCY : TWICE A DAY;?
     Route: 048
  2. FINGOLIMOD [Concomitant]
     Active Substance: FINGOLIMOD

REACTIONS (3)
  - COVID-19 [None]
  - Myocardial infarction [None]
  - Unevaluable event [None]
